FAERS Safety Report 18913085 (Version 2)
Quarter: 2024Q1

REPORT INFORMATION
  Report Type: Spontaneous
  Country: GR (occurrence: GR)
  Receive Date: 20210218
  Receipt Date: 20240105
  Transmission Date: 20240410
  Serious: Yes (Death, Hospitalization)
  Sender: FDA-Public Use
  Company Number: None

PATIENT
  Age: 68 Year
  Sex: Female

DRUGS (14)
  1. PIPERACILLIN SODIUM\TAZOBACTAM SODIUM [Suspect]
     Active Substance: PIPERACILLIN SODIUM\TAZOBACTAM SODIUM
     Indication: Infection
     Dosage: 4.5 GRAM, TID, INJECTION
  2. PIPERACILLIN SODIUM\TAZOBACTAM SODIUM [Suspect]
     Active Substance: PIPERACILLIN SODIUM\TAZOBACTAM SODIUM
     Indication: Escherichia infection
  3. VANCOMYCIN [Suspect]
     Active Substance: VANCOMYCIN
     Indication: Infection
     Dosage: 1 GRAM, BID, POWDER FOR INJECTION
  4. VANCOMYCIN [Suspect]
     Active Substance: VANCOMYCIN
     Indication: Escherichia infection
  5. MEROPENEM [Suspect]
     Active Substance: MEROPENEM
     Indication: Infection
     Dosage: 2 GRAM, TID, INJECTION
  6. MEROPENEM [Suspect]
     Active Substance: MEROPENEM
     Indication: Escherichia infection
  7. IMIPENEM [Suspect]
     Active Substance: IMIPENEM
     Indication: Infection
     Dosage: 1 GRAM, TID
  8. IMIPENEM [Suspect]
     Active Substance: IMIPENEM
     Indication: Escherichia infection
  9. MOXIFLOXACIN [Suspect]
     Active Substance: MOXIFLOXACIN
     Indication: Infection
     Dosage: 400 MILLIGRAM, QD
  10. MOXIFLOXACIN [Suspect]
     Active Substance: MOXIFLOXACIN
     Indication: Escherichia infection
  11. ITRACONAZOLE [Suspect]
     Active Substance: ITRACONAZOLE
     Indication: Infection
     Dosage: 200 MILLIGRAM, BID
  12. ITRACONAZOLE [Suspect]
     Active Substance: ITRACONAZOLE
     Indication: Escherichia infection
  13. INSULIN GLARGINE [Concomitant]
     Active Substance: INSULIN GLARGINE
     Indication: Hypothyroidism
     Dosage: 18 U? S. Q Q D
     Route: 065
  14. LEVOTHYROXINE [Concomitant]
     Active Substance: LEVOTHYROXINE
     Indication: Hypothyroidism
     Dosage: 137 MICROGRAM P.OS. Q.D.
     Route: 065

REACTIONS (1)
  - Drug ineffective [Fatal]
